FAERS Safety Report 7313294-X (Version None)
Quarter: 2011Q1

REPORT INFORMATION
  Report Type: 
  Country: None (occurrence: None)
  Receive Date: 20110217
  Receipt Date: 20110217
  Transmission Date: 20110831
  Serious: Yes (Hospitalization)
  Sender: FDA-Public Use
  Company Number: None

PATIENT
  Sex: Female
  Weight: 58 kg

DRUGS (6)
  1. REYATAZ [Suspect]
     Indication: CONGENITAL HIV INFECTION
     Dosage: 1 CAPSULE NIGHTLY PO
     Route: 048
     Dates: start: 20060612, end: 20100910
  2. DORYX [Concomitant]
  3. COMBIVIR [Suspect]
     Indication: CONGENITAL HIV INFECTION
     Dosage: 1 TABLET TWICE DAILY PO
     Route: 048
     Dates: start: 20060612, end: 20100910
  4. NORVIR [Suspect]
     Indication: CONGENITAL HIV INFECTION
     Dosage: 1 CAPSULE NIGHTLY PO
     Route: 048
     Dates: start: 20060612, end: 20100910
  5. MULTIVITAMIN W/CALCIUM AND VITAMIN D [Concomitant]
  6. SPIRONOLACTONE [Concomitant]

REACTIONS (7)
  - JOINT SWELLING [None]
  - ARTHRALGIA [None]
  - MENINGITIS ASEPTIC [None]
  - BLOOD CREATINE PHOSPHOKINASE INCREASED [None]
  - MENINGITIS VIRAL [None]
  - TRANSAMINASES INCREASED [None]
  - LIVER FUNCTION TEST ABNORMAL [None]
